FAERS Safety Report 12341507 (Version 19)
Quarter: 2017Q2

REPORT INFORMATION
  Report Type: Report from Study
  Country: CA (occurrence: CA)
  Receive Date: 20160506
  Receipt Date: 20170629
  Transmission Date: 20170830
  Serious: Yes (Hospitalization, Other)
  Sender: FDA-Public Use
  Company Number: PHHY2016CA003462

PATIENT
  Age: 79 Year
  Sex: Male

DRUGS (9)
  1. SANDOSTATIN [Suspect]
     Active Substance: OCTREOTIDE ACETATE
     Indication: SMALL INTESTINE CARCINOMA METASTATIC
     Dosage: 100 UG, TID
     Route: 058
     Dates: start: 201512
  2. SANDOSTATIN LAR DEPOT [Suspect]
     Active Substance: OCTREOTIDE ACETATE
     Dosage: 40 MG, QMO (EVERY 4 WEEKS)
     Route: 030
     Dates: start: 20160506
  3. COVERSYL//PERINDOPRIL ARGININE [Concomitant]
     Active Substance: PERINDOPRIL ARGININE
     Indication: BLOOD PRESSURE INCREASED
     Dosage: 5 MG, QD
     Route: 065
     Dates: start: 20161210
  4. COVERSYL//PERINDOPRIL ARGININE [Concomitant]
     Active Substance: PERINDOPRIL ARGININE
     Dosage: 5 MG, QD
     Route: 065
     Dates: start: 20161210
  5. BABY ASPIRIN [Concomitant]
     Active Substance: ASPIRIN
     Indication: PRODUCT USED FOR UNKNOWN INDICATION
     Route: 065
  6. AMLODIPINE [Concomitant]
     Active Substance: AMLODIPINE BESYLATE
     Indication: BLOOD PRESSURE INCREASED
     Dosage: 5 MG, QD
     Route: 065
     Dates: start: 20161210
  7. EYE DROPS [Concomitant]
     Active Substance: UNSPECIFIED INGREDIENT
     Indication: PRODUCT USED FOR UNKNOWN INDICATION
     Route: 065
  8. SANDOSTATIN LAR DEPOT [Suspect]
     Active Substance: OCTREOTIDE ACETATE
     Indication: SMALL INTESTINE CARCINOMA METASTATIC
     Dosage: 30 MG, QMO (EVERY 4 WEEKS)
     Route: 030
     Dates: start: 20160128, end: 20160421
  9. ERTAPENEM [Concomitant]
     Active Substance: ERTAPENEM
     Indication: PRODUCT USED FOR UNKNOWN INDICATION
     Dosage: 30 MG, QD (1,000MG VIA PICC LINE INFUSED 30 MG ONCE DAILY)
     Route: 065
     Dates: start: 20161208

REACTIONS (26)
  - Liver abscess [Unknown]
  - Malignant neoplasm progression [Unknown]
  - Acne [Unknown]
  - Weight decreased [Unknown]
  - Diarrhoea [Unknown]
  - Constipation [Recovering/Resolving]
  - Erythema [Unknown]
  - Rash [Unknown]
  - Nasal polyps [Unknown]
  - Faeces soft [Unknown]
  - Injection site pain [Recovered/Resolved]
  - Heart rate decreased [Unknown]
  - Scar [Unknown]
  - Blood pressure increased [Unknown]
  - Abdominal distension [Unknown]
  - Intestinal obstruction [Unknown]
  - Metastases to liver [Unknown]
  - Incision site complication [Unknown]
  - Hepatic lesion [Unknown]
  - Body temperature decreased [Unknown]
  - Faeces discoloured [Unknown]
  - Blood pressure systolic increased [Unknown]
  - Flatulence [Unknown]
  - Bronchitis [Unknown]
  - Cholelithiasis [Unknown]
  - Pruritus [Unknown]

NARRATIVE: CASE EVENT DATE: 20160206
